FAERS Safety Report 10975704 (Version 1)
Quarter: 2015Q2

REPORT INFORMATION
  Report Type: Spontaneous
  Country: GB (occurrence: GB)
  Receive Date: 20150401
  Receipt Date: 20150401
  Transmission Date: 20150821
  Serious: Yes (Other)
  Sender: FDA-Public Use
  Company Number: GB-PFIZER INC-2015107024

PATIENT
  Age: 76 Year
  Sex: Female
  Weight: 50 kg

DRUGS (9)
  1. ADCAL [Concomitant]
     Dosage: 1 DF, 2X/DAY
     Dates: start: 20150129, end: 20150226
  2. ASPIRIN. [Concomitant]
     Active Substance: ASPIRIN
     Dosage: 1 DF, 1X/DAY
     Dates: start: 20140821
  3. PRO D3 [Concomitant]
     Dosage: 1 DF, WEEKLY
     Dates: start: 20150129
  4. ATORVASTATIN [Suspect]
     Active Substance: ATORVASTATIN
     Dosage: 1 DF, 1X/DAY
     Dates: start: 20140821
  5. DORZOLAMIDE HYDROCHLORIDE. [Concomitant]
     Active Substance: DORZOLAMIDE HYDROCHLORIDE
     Dosage: 1 DF, 2X/DAY
     Dates: start: 20140821
  6. TRIMETHOPRIM. [Concomitant]
     Active Substance: TRIMETHOPRIM
     Dosage: 2 DF, UNK
     Dates: start: 20141222, end: 20141225
  7. ADIPINE - SLOW RELEASE [Concomitant]
     Dosage: 1 DF, 2X/DAY
     Dates: start: 20140821
  8. ALPHA TOCOPHEROL ACETATE/GLYCEROL/LECITHIN/PY [Concomitant]
     Dosage: 1 DF (1 ML), 1X/DAY
     Dates: start: 20150129
  9. METFORMIN [Concomitant]
     Active Substance: METFORMIN HYDROCHLORIDE
     Dosage: 2 DF, 2X/DAY (WITH FOOD)
     Dates: start: 20140821

REACTIONS (1)
  - Alopecia [Recovering/Resolving]

NARRATIVE: CASE EVENT DATE: 20150317
